FAERS Safety Report 4763117-8 (Version None)
Quarter: 2005Q3

REPORT INFORMATION
  Report Type: 
  Country: None (occurrence: None)
  Receive Date: 20050826
  Receipt Date: 20041214
  Transmission Date: 20060218
  Serious: Yes (Death, Other)
  Sender: FDA-Public Use
  Company Number: USA-2004-0013577

PATIENT
  Age: 35 Year
  Sex: Male
  Weight: 91.6 kg

DRUGS (1)
  1. OXYCONTIN [Suspect]
     Dosage: MG

REACTIONS (4)
  - ACCIDENTAL OVERDOSE [None]
  - CARDIAC ARREST [None]
  - DRUG ABUSER [None]
  - DRUG DEPENDENCE [None]
